FAERS Safety Report 10672090 (Version 2)
Quarter: 2014Q4

REPORT INFORMATION
  Report Type: Spontaneous
  Country: IT (occurrence: IT)
  Receive Date: 20141223
  Receipt Date: 20141223
  Transmission Date: 20150529
  Serious: Yes (Death, Other)
  Sender: FDA-Public Use
  Company Number: IT-CELGENE-083-50794-13050531

PATIENT

DRUGS (1)
  1. VIDAZA [Suspect]
     Active Substance: AZACITIDINE
     Indication: MYELODYSPLASTIC SYNDROME
     Dosage: 75 MILLIGRAM/SQ. METER
     Route: 058
     Dates: start: 200910, end: 201212

REACTIONS (6)
  - Diarrhoea [Unknown]
  - Injection site reaction [Unknown]
  - Nausea [Unknown]
  - Cytopenia [Unknown]
  - Vomiting [Unknown]
  - Adverse event [Fatal]
